FAERS Safety Report 12214271 (Version 1)
Quarter: 2016Q1

REPORT INFORMATION
  Report Type: Spontaneous
  Country: US (occurrence: US)
  Receive Date: 20160328
  Receipt Date: 20160328
  Transmission Date: 20160526
  Serious: No
  Sender: FDA-Public Use
  Company Number: US-BAUSCH-BL-2016-001198

PATIENT
  Age: 71 Year
  Sex: Female

DRUGS (2)
  1. RETIN-A MICRO [Suspect]
     Active Substance: TRETINOIN
     Indication: OFF LABEL USE
     Route: 065
  2. CETAPHIL MOISTURIZING CREAM [Concomitant]
     Active Substance: COSMETICS
     Indication: THERAPEUTIC SKIN CARE TOPICAL

REACTIONS (2)
  - Off label use [Unknown]
  - Chemical burn of skin [Recovered/Resolved]

NARRATIVE: CASE EVENT DATE: 2015
